FAERS Safety Report 9248890 (Version 1)
Quarter: 2013Q2

REPORT INFORMATION
  Report Type: Spontaneous
  Country: US (occurrence: US)
  Receive Date: 20130423
  Receipt Date: 20130423
  Transmission Date: 20140414
  Serious: Yes (Other)
  Sender: FDA-Public Use
  Company Number: US-ELI_LILLY_AND_COMPANY-US201304004160

PATIENT
  Age: 63 Year
  Sex: Female

DRUGS (5)
  1. CYMBALTA [Suspect]
     Indication: DEPRESSION
     Dosage: 60 MG, QD
  2. CYMBALTA [Suspect]
     Dosage: 60 MG, ONCE EVERY OTHER DAY
  3. CYMBALTA [Suspect]
     Dosage: 60 MG, QD
  4. NEXIUM [Concomitant]
     Dosage: UNK, UNKNOWN
  5. LOSARTAN [Concomitant]
     Dosage: UNK, UNKNOWN

REACTIONS (15)
  - Grand mal convulsion [Recovered/Resolved]
  - Rib fracture [Recovered/Resolved]
  - Abasia [Recovered/Resolved]
  - Personality change [Recovered/Resolved]
  - Screaming [Recovered/Resolved]
  - Postictal state [Recovered/Resolved]
  - Mental impairment [Not Recovered/Not Resolved]
  - Amnesia [Not Recovered/Not Resolved]
  - Hypersomnia [Recovered/Resolved]
  - Vision blurred [Recovered/Resolved]
  - Movement disorder [Recovered/Resolved]
  - Feeding disorder [Recovered/Resolved]
  - Myalgia [Recovered/Resolved]
  - Anger [Recovered/Resolved]
  - Drug withdrawal syndrome [Recovered/Resolved]
